FAERS Safety Report 5443488-X (Version None)
Quarter: 2007Q3

REPORT INFORMATION
  Report Type: 
  Country: None (occurrence: None)
  Receive Date: 20070905
  Receipt Date: 20070822
  Transmission Date: 20080115
  Serious: Yes (Life-Threatening, Other)
  Sender: FDA-Public Use
  Company Number: DE-PURDUE-DEU_2007_0003587

PATIENT
  Age: 82 Year
  Sex: Female
  Weight: 65 kg

DRUGS (11)
  1. OXYGESIC 20 MG [Suspect]
     Indication: PAIN
     Dosage: 20 MG, BID
     Route: 048
  2. OXYGESIC 20 MG [Suspect]
     Dosage: 10 MG, BID
     Route: 048
  3. MIRTAZAPINE [Suspect]
     Indication: DEPRESSION
     Dosage: 30 MG, PM
     Route: 048
     Dates: start: 20060101
  4. MADOPAR [Suspect]
     Indication: RESTLESS LEGS SYNDROME
     Dosage: 2 TABLET, PM
     Route: 048
     Dates: start: 20060101
  5. OMEP [Concomitant]
  6. TORSEMIDE [Concomitant]
  7. ATACAND [Concomitant]
  8. BELOC [Concomitant]
  9. METOHEXAL [Concomitant]
  10. MELPERONE [Concomitant]
  11. EFEROX [Concomitant]

REACTIONS (6)
  - CARDIAC ARREST [None]
  - NAUSEA [None]
  - RESPIRATORY ARREST [None]
  - VENTRICULAR FIBRILLATION [None]
  - VOMITING [None]
  - WRONG TECHNIQUE IN DRUG USAGE PROCESS [None]
